FAERS Safety Report 4416633-2 (Version None)
Quarter: 2004Q2

REPORT INFORMATION
  Report Type: 
  Country: None (occurrence: None)
  Receive Date: 20040630
  Receipt Date: 20040312
  Transmission Date: 20050107
  Serious: Yes (Other)
  Sender: FDA-Public Use
  Company Number: ENTC2004-0050

PATIENT
  Age: 85 Year
  Sex: Female

DRUGS (7)
  1. STALEVO 100 [Suspect]
     Dosage: SEE IMAGE
     Route: 048
     Dates: start: 20030901, end: 20040229
  2. STALEVO 100 [Suspect]
     Dosage: SEE IMAGE
     Route: 048
     Dates: start: 20040229
  3. MIRAPEX [Concomitant]
  4. DIGOXIN [Concomitant]
  5. K-DUR 10 [Concomitant]
  6. BUMEX [Concomitant]
  7. PROTONIX [Concomitant]

REACTIONS (1)
  - PYREXIA [None]
